FAERS Safety Report 7799572-9 (Version None)
Quarter: 2011Q4

REPORT INFORMATION
  Report Type: 
  Country: None (occurrence: None)
  Receive Date: 20111004
  Receipt Date: 20110920
  Transmission Date: 20120403
  Serious: Yes (Other)
  Sender: FDA-Public Use
  Company Number: 2011P1008602

PATIENT
  Age: 45 Year
  Sex: Female
  Weight: 73.4827 kg

DRUGS (22)
  1. PRILOSEC [Concomitant]
  2. FENTANYL [Suspect]
     Indication: PAIN
  3. LYRICA [Concomitant]
  4. MILK OF MAGNESIA TAB [Concomitant]
  5. FENTANYL-75 [Suspect]
     Indication: PAIN
  6. DICYCLOMINE [Concomitant]
  7. GLUCOPHAGE [Concomitant]
  8. PROMETHAZINE [Concomitant]
  9. HUMULIN R [Concomitant]
  10. XANAX [Concomitant]
  11. OXYCONTIN [Concomitant]
  12. FENTANYL [Suspect]
     Indication: PAIN
  13. CIPROFLOXACIN [Concomitant]
  14. ORTHO TRI-CYCLEN [Concomitant]
  15. PAXIL [Concomitant]
  16. HUMULIN N [Concomitant]
  17. LISINOPRIL [Concomitant]
  18. ENABLEX [Concomitant]
  19. VALTREX [Concomitant]
  20. NUCYNTA [Suspect]
     Dosage: 50 MG;TID
     Dates: start: 20100622, end: 20100624
  21. JANUVIA [Concomitant]
  22. DIFLUCAN [Concomitant]

REACTIONS (26)
  - VOMITING [None]
  - NO THERAPEUTIC RESPONSE [None]
  - PAIN [None]
  - MALAISE [None]
  - WEIGHT DECREASED [None]
  - PRODUCT ADHESION ISSUE [None]
  - WRONG TECHNIQUE IN DRUG USAGE PROCESS [None]
  - DYSPHORIA [None]
  - ABDOMINAL DISCOMFORT [None]
  - GALLBLADDER DISORDER [None]
  - SKIN DISORDER [None]
  - NECK PAIN [None]
  - BACK PAIN [None]
  - ASTHENIA [None]
  - HYPERHIDROSIS [None]
  - HEPATIC ENZYME INCREASED [None]
  - BLOOD GLUCOSE INCREASED [None]
  - URINARY TRACT INFECTION [None]
  - GASTRITIS [None]
  - APPLICATION SITE ULCER [None]
  - ILEUS [None]
  - DYSPNOEA [None]
  - NAUSEA [None]
  - STRESS ULCER [None]
  - CHEST DISCOMFORT [None]
  - DIARRHOEA [None]
